FAERS Safety Report 21511284 (Version 1)
Quarter: 2022Q4

REPORT INFORMATION
  Report Type: Spontaneous
  Country: FR (occurrence: FR)
  Receive Date: 20221027
  Receipt Date: 20221027
  Transmission Date: 20230113
  Serious: Yes (Other)
  Sender: FDA-Public Use
  Company Number: FR-AFSSAPS-ST20222226

PATIENT
  Age: 55 Year
  Sex: Male
  Weight: 72.3 kg

DRUGS (7)
  1. LINEZOLID [Suspect]
     Active Substance: LINEZOLID
     Indication: Antibiotic therapy
     Dosage: UNK (DOSAGE NOT SPECIFIED)
     Route: 042
     Dates: start: 20200317, end: 20200324
  2. AMIKACIN [Suspect]
     Active Substance: AMIKACIN
     Indication: Antibiotic therapy
     Dosage: 1 DOSAGE FORM
     Route: 042
     Dates: start: 20200322, end: 20200322
  3. CEFOTAXIME SODIUM [Suspect]
     Active Substance: CEFOTAXIME SODIUM
     Indication: Antibiotic therapy
     Dosage: UNK (DOSAGE NOT SPECIFIED)
     Route: 042
     Dates: start: 20200317, end: 20200322
  4. KALETRA [Suspect]
     Active Substance: LOPINAVIR\RITONAVIR
     Indication: Viral infection
     Dosage: UNK (DOSAGE NOT SPECIFIED)
     Route: 042
     Dates: start: 20200317, end: 20200324
  5. PROPOFOL LIPURO [Suspect]
     Active Substance: PROPOFOL
     Indication: Sedation
     Dosage: UNK (DOSAGE NOT SPECIFIED)
     Route: 042
     Dates: start: 20200316, end: 20200422
  6. SUFENTANIL [Suspect]
     Active Substance: SUFENTANIL
     Indication: Sedation
     Dosage: UNK, DOSAGE NOT SPECIFIED
     Route: 042
     Dates: start: 20200316, end: 20200422
  7. PIPERACILLIN SODIUM\TAZOBACTAM SODIUM [Suspect]
     Active Substance: PIPERACILLIN SODIUM\TAZOBACTAM SODIUM
     Indication: Antibiotic therapy
     Dosage: UNK, DOSAGE NOT SPECIFIED
     Route: 042
     Dates: start: 20200322, end: 20200324

REACTIONS (1)
  - Rash maculo-papular [Recovered/Resolved]

NARRATIVE: CASE EVENT DATE: 20200324
